FAERS Safety Report 11362792 (Version 1)
Quarter: 2015Q3

REPORT INFORMATION
  Report Type: Spontaneous
  Country: DK (occurrence: DK)
  Receive Date: 20150810
  Receipt Date: 20150810
  Transmission Date: 20151125
  Serious: Yes (Hospitalization)
  Sender: FDA-Public Use
  Company Number: PHHY2015DK092202

PATIENT
  Age: 35 Year
  Sex: Male

DRUGS (1)
  1. PANCILLIN [Suspect]
     Active Substance: PENICILLIN
     Indication: SINUSITIS
     Dosage: 1 DF, TID
     Route: 048
     Dates: start: 20150426, end: 20150429

REACTIONS (3)
  - Hypersensitivity [Unknown]
  - Urticaria [Recovered/Resolved]
  - Heart rate increased [Unknown]

NARRATIVE: CASE EVENT DATE: 201504
